FAERS Safety Report 5841262-3 (Version None)
Quarter: 2008Q3

REPORT INFORMATION
  Report Type: 
  Country: None (occurrence: None)
  Receive Date: 20080812
  Receipt Date: 20080802
  Transmission Date: 20090109
  Serious: Yes (Other)
  Sender: FDA-Public Use
  Company Number: US-BAYER-200823842GPV

PATIENT
  Age: 23 Year
  Sex: Male

DRUGS (1)
  1. FLUDARABINE [Suspect]
     Indication: BONE MARROW CONDITIONING REGIMEN
     Route: 065

REACTIONS (7)
  - BLINDNESS [None]
  - BRAIN HERNIATION [None]
  - BRAIN OEDEMA [None]
  - HYDROCEPHALUS [None]
  - OCULAR TOXICITY [None]
  - OPTIC ATROPHY [None]
  - VISUAL ACUITY REDUCED [None]
